FAERS Safety Report 23915694 (Version 1)
Quarter: 2024Q2

REPORT INFORMATION
  Report Type: Spontaneous
  Country: US (occurrence: US)
  Receive Date: 20240529
  Receipt Date: 20240529
  Transmission Date: 20240716
  Serious: Yes (Death, Hospitalization)
  Sender: FDA-Public Use
  Company Number: US-FMCRTG-FMC-2405-000578

PATIENT
  Age: 76 Year
  Sex: Male
  Weight: 77 kg

DRUGS (6)
  1. DELFLEX WITH DEXTROSE 1.5% LOW MAGNESIUM LOW CALCIUM [Suspect]
     Active Substance: CALCIUM CHLORIDE\DEXTROSE\MAGNESIUM CHLORIDE\SODIUM CHLORIDE\SODIUM LACTATE
     Indication: End stage renal disease
     Dosage: CCPD 5 EXCHANGES, 2L FILL, DWELL TIME 1HR AND 58MINS, WITH LASTFILL OF 1500ML ICODEXTRIN.
     Route: 033
  2. DELFLEX WITH DEXTROSE 2.5% LOW MAGNESIUM LOW CALCIUM [Suspect]
     Active Substance: CALCIUM CHLORIDE\DEXTROSE\MAGNESIUM CHLORIDE\SODIUM CHLORIDE\SODIUM LACTATE
     Indication: End stage renal disease
     Dosage: CCPD 5 EXCHANGES, 2L FILL, DWELL TIME 1HR AND 58MINS, WITH LASTFILL OF 1500ML ICODEXTRIN.
     Route: 033
  3. DELFLEX WITH DEXTROSE 4.25% LOW MAGNESIUM LOW CALCIUM [Suspect]
     Active Substance: CALCIUM CHLORIDE\DEXTROSE\MAGNESIUM CHLORIDE\SODIUM CHLORIDE\SODIUM LACTATE
     Indication: End stage renal disease
     Dosage: CCPD 5 EXCHANGES, 2L FILL, DWELL TIME 1HR AND 58MINS, WITH LASTFILL OF 1500ML ICODEXTRIN.
     Route: 033
  4. ICODEXTRIN [Suspect]
     Active Substance: ICODEXTRIN
     Indication: End stage renal disease
  5. ELIQUIS [Concomitant]
     Active Substance: APIXABAN
  6. METOPROLOL [Concomitant]
     Active Substance: METOPROLOL

REACTIONS (2)
  - Cardiac arrest [Fatal]
  - Muscular weakness [Unknown]

NARRATIVE: CASE EVENT DATE: 20240325
